FAERS Safety Report 5086373-8 (Version None)
Quarter: 2006Q3

REPORT INFORMATION
  Report Type: 
  Country: None (occurrence: None)
  Receive Date: 20060703
  Receipt Date: 20060328
  Transmission Date: 20061208
  Serious: No
  Sender: FDA-Public Use
  Company Number: 2006S1002788

PATIENT
  Age: 44 Year
  Sex: Male

DRUGS (7)
  1. CLOZAPINE [Suspect]
     Indication: SCHIZOPHRENIA
     Dosage: 200 MG;QAM;ORAL; SEE IMAGE
     Route: 048
     Dates: start: 20030604
  2. CLOZAPINE [Suspect]
     Indication: SCHIZOPHRENIA
     Dosage: 200 MG;QAM;ORAL; SEE IMAGE
     Route: 048
     Dates: start: 20060604
  3. ARIPIPRAZOLE [Concomitant]
  4. TRIHEXYPHENIDYL HCL [Concomitant]
  5. HYDROCHLORIDE [Concomitant]
  6. ATENOLOL [Concomitant]
  7. IRON [Concomitant]

REACTIONS (1)
  - GRANULOCYTOPENIA [None]
